FAERS Safety Report 4405129-X (Version None)
Quarter: 2004Q3

REPORT INFORMATION
  Report Type: 
  Country: None (occurrence: None)
  Receive Date: 20040719
  Receipt Date: 20040702
  Transmission Date: 20050211
  Serious: Yes (Hospitalization)
  Sender: FDA-Public Use
  Company Number: 170688

PATIENT
  Age: 47 Year
  Sex: Male
  Weight: 108.9 kg

DRUGS (8)
  1. AVONEX [Suspect]
     Indication: MULTIPLE SCLEROSIS
     Dosage: 30 MCG BIW IM
     Route: 030
     Dates: start: 20020701, end: 20021201
  2. AVONEX [Suspect]
     Indication: MULTIPLE SCLEROSIS
     Dosage: 30 MCG QW IM
     Route: 030
     Dates: start: 20021201, end: 20030206
  3. PREDNISONE [Concomitant]
  4. COPAXONE [Concomitant]
  5. CYTOXAN [Concomitant]
  6. AMINOPYRIDINE [Concomitant]
  7. DECADRON [Concomitant]
  8. CLADRIBINE [Concomitant]

REACTIONS (9)
  - COMA [None]
  - DEEP VEIN THROMBOSIS [None]
  - DISEASE RECURRENCE [None]
  - HERPES ZOSTER [None]
  - IMMUNODEFICIENCY COMMON VARIABLE [None]
  - IMMUNOGLOBULINS DECREASED [None]
  - MYOCARDIAL INFARCTION [None]
  - PNEUMONIA [None]
  - PULMONARY HYPERTENSION [None]
